FAERS Safety Report 5480517-1 (Version None)
Quarter: 2007Q4

REPORT INFORMATION
  Report Type: 
  Country: None (occurrence: None)
  Receive Date: 20071009
  Receipt Date: 20071001
  Transmission Date: 20080405
  Serious: Yes (Other)
  Sender: FDA-Public Use
  Company Number: BM-ASTRAZENECA-2007AC01880

PATIENT
  Age: 18 Year
  Sex: Female
  Weight: 86 kg

DRUGS (4)
  1. BUPIVACAINE [Suspect]
     Indication: EPIDURAL ANAESTHESIA
     Route: 008
  2. BUPIVACAINE [Suspect]
     Route: 008
  3. LIDOCAINE [Concomitant]
     Route: 008
  4. FENTANYL [Concomitant]
     Dosage: 100 UG IN 6 ML
     Route: 008

REACTIONS (6)
  - AGITATION [None]
  - CEREBRAL DISORDER [None]
  - ILL-DEFINED DISORDER [None]
  - LOSS OF CONSCIOUSNESS [None]
  - MUSCLE TWITCHING [None]
  - RESTLESSNESS [None]
